FAERS Safety Report 7304303-2 (Version None)
Quarter: 2011Q1

REPORT INFORMATION
  Report Type: 
  Country: None (occurrence: None)
  Receive Date: 20110221
  Receipt Date: 20110215
  Transmission Date: 20110831
  Serious: Yes (Other)
  Sender: FDA-Public Use
  Company Number: PL-BAXTER-2011BH003814

PATIENT
  Age: 66 Year
  Sex: Female

DRUGS (1)
  1. SODIUM CHLORIDE 0.9% IN PLASTIC CONTAINER [Suspect]
     Indication: HYPERCALCAEMIA
     Route: 042
     Dates: start: 20110110, end: 20110117

REACTIONS (3)
  - PYREXIA [None]
  - BLOOD PRESSURE INCREASED [None]
  - CHILLS [None]
